FAERS Safety Report 24148932 (Version 1)
Quarter: 2024Q3

REPORT INFORMATION
  Report Type: Spontaneous
  Country: CN (occurrence: CN)
  Receive Date: 20240729
  Receipt Date: 20240729
  Transmission Date: 20241017
  Serious: Yes (Hospitalization)
  Sender: MERCK
  Company Number: CN-009507513-2407CHN014150

PATIENT
  Age: 41 Year
  Sex: Male

DRUGS (5)
  1. POSACONAZOLE [Interacting]
     Active Substance: POSACONAZOLE
     Indication: Fungal infection
     Dosage: UNK
     Route: 048
     Dates: start: 202103
  2. TACROLIMUS [Interacting]
     Active Substance: TACROLIMUS
     Indication: Transplant rejection
     Dosage: UNK
     Dates: start: 2021
  3. GANCICLOVIR [Concomitant]
     Active Substance: GANCICLOVIR
     Indication: Antiviral treatment
     Dosage: UNK
     Dates: start: 202103
  4. PREDNISONE [Concomitant]
     Active Substance: PREDNISONE
     Indication: Transplant rejection
     Dosage: UNK
     Dates: start: 2021
  5. MYCOPHENOLATE SODIUM [Concomitant]
     Active Substance: MYCOPHENOLATE SODIUM
     Indication: Transplant rejection
     Dosage: UNK
     Dates: start: 2021

REACTIONS (1)
  - Drug interaction [Recovered/Resolved]

NARRATIVE: CASE EVENT DATE: 20210301
